FAERS Safety Report 21077872 (Version 1)
Quarter: 2022Q3

REPORT INFORMATION
  Report Type: Spontaneous
  Country: CN (occurrence: CN)
  Receive Date: 20220713
  Receipt Date: 20220713
  Transmission Date: 20221027
  Serious: Yes (Other)
  Sender: FDA-Public Use
  Company Number: None

PATIENT
  Age: 48 Year
  Sex: Female

DRUGS (8)
  1. CYCLOPHOSPHAMIDE [Suspect]
     Active Substance: CYCLOPHOSPHAMIDE
     Indication: Breast cancer female
     Dosage: 1-2 CYCLES OF CHEMOTHERAPY, (CYCLOPHOSPHAMIDE + SODIUM CHLORIDE )
     Route: 042
  2. CYCLOPHOSPHAMIDE [Suspect]
     Active Substance: CYCLOPHOSPHAMIDE
     Dosage: 900 MG, QD,  3RD CYCLE OF CHEMOTHERAPY, ROUTE-INTRAVENOUS INJECTION,CYCLOPHOSPHAMIDE (900 MG) + SODI
     Route: 042
     Dates: start: 20220506, end: 20220506
  3. SODIUM CHLORIDE [Suspect]
     Active Substance: SODIUM CHLORIDE
     Indication: Medication dilution
     Dosage: 1-2 CYCLES OF CHEMOTHERAPY, (CYCLOPHOSPHAMIDE + SODIUM CHLORIDE )
     Route: 042
  4. SODIUM CHLORIDE [Suspect]
     Active Substance: SODIUM CHLORIDE
     Dosage: 45 ML, QD,  3RD CYCLE OF CHEMOTHERAPY, ROUTE-INTRAVENOUS INJECTION, CYCLOPHOSPHAMIDE (900 MG) + SODI
     Route: 042
     Dates: start: 20220506, end: 20220506
  5. SODIUM CHLORIDE [Suspect]
     Active Substance: SODIUM CHLORIDE
     Dosage: 1-2 CYCLES OF CHEMOTHERAPY, (EPIRUBICIN HYDROCHLORIDE + SODIUM CHLORIDE )
     Route: 041
  6. SODIUM CHLORIDE [Suspect]
     Active Substance: SODIUM CHLORIDE
     Dosage: 100 ML, QD, 3RD CYCLE OF CHEMOTHERAPY, EPIRUBICIN HYDROCHLORIDE (132 MG) + SODIUM CHLORIDE (100 ML)
     Route: 041
     Dates: start: 20220506, end: 20220506
  7. EPIRUBICIN HYDROCHLORIDE [Suspect]
     Active Substance: EPIRUBICIN HYDROCHLORIDE
     Indication: Breast cancer female
     Dosage: 1-2 CYCLES OF CHEMOTHERAPY, (EPIRUBICIN HYDROCHLORIDE + SODIUM CHLORIDE )
     Route: 041
  8. EPIRUBICIN HYDROCHLORIDE [Suspect]
     Active Substance: EPIRUBICIN HYDROCHLORIDE
     Dosage: 132 MG, QD, 3RD CYCLE OF CHEMOTHERAPY, EPIRUBICIN HYDROCHLORIDE (132 MG) + SODIUM CHLORIDE (100 ML)
     Route: 041
     Dates: start: 20220506, end: 20220506

REACTIONS (2)
  - White blood cell count decreased [Recovered/Resolved]
  - Agranulocytosis [Recovered/Resolved]

NARRATIVE: CASE EVENT DATE: 20220516
